FAERS Safety Report 5922468-1 (Version None)
Quarter: 2008Q4

REPORT INFORMATION
  Report Type: 
  Country: None (occurrence: None)
  Receive Date: 20081017
  Receipt Date: 20081016
  Transmission Date: 20090506
  Serious: Yes (Death)
  Sender: FDA-Public Use
  Company Number: CN-BAYER-200828430GPV

PATIENT
  Age: 60 Year
  Sex: Male

DRUGS (2)
  1. NEXAVAR [Suspect]
     Indication: RENAL CELL CARCINOMA
     Dosage: TOTAL DAILY DOSE: 800 MG
     Route: 048
     Dates: start: 20081005
  2. INTERFERON [Concomitant]
     Indication: RENAL CELL CARCINOMA
     Route: 065
     Dates: start: 20080901

REACTIONS (2)
  - MULTI-ORGAN FAILURE [None]
  - VERTIGO [None]
